FAERS Safety Report 5396171-3 (Version None)
Quarter: 2007Q3

REPORT INFORMATION
  Report Type: 
  Country: None (occurrence: None)
  Receive Date: 20070725
  Receipt Date: 20070717
  Transmission Date: 20080115
  Serious: Yes (Other)
  Sender: FDA-Public Use
  Company Number: PHEH2007US07786

PATIENT
  Age: 43 Year
  Sex: Female
  Weight: 70.294 kg

DRUGS (1)
  1. ZELNORM [Suspect]
     Indication: IRRITABLE BOWEL SYNDROME
     Dosage: UNK, BID
     Dates: start: 20050101, end: 20070201

REACTIONS (6)
  - ABDOMINAL PAIN [None]
  - COLONIC POLYP [None]
  - GASTROOESOPHAGEAL REFLUX DISEASE [None]
  - HEPATIC LESION [None]
  - HEPATIC NEOPLASM [None]
  - HEPATIC STEATOSIS [None]
